FAERS Safety Report 20597367 (Version 1)
Quarter: 2022Q1

REPORT INFORMATION
  Report Type: Spontaneous
  Country: US (occurrence: None)
  Receive Date: 20220315
  Receipt Date: 20220315
  Transmission Date: 20220424
  Serious: Yes (Hospitalization)
  Sender: FDA-Public Use
  Company Number: None

PATIENT
  Sex: Male

DRUGS (4)
  1. HUMIRA [Suspect]
     Active Substance: ADALIMUMAB
     Indication: Colitis ulcerative
     Dosage: INJECT 40 MG UNDER THE SKIN (SUBCUTANEOUS INJECTION) EVERY OTHER WEEK
     Route: 058
     Dates: start: 20210324
  2. ACID REDUCER [Concomitant]
     Active Substance: ESOMEPRAZOLE MAGNESIUM
  3. AMLODIPINE [Concomitant]
     Active Substance: AMLODIPINE BESYLATE
  4. SILDENAFIL [Concomitant]

REACTIONS (2)
  - Gastroenteritis viral [None]
  - Gastroenteritis [None]
